FAERS Safety Report 9508053 (Version 1)
Quarter: 2013Q1

REPORT INFORMATION
  Report Type: Spontaneous
  Country: US (occurrence: None)
  Receive Date: 20130305
  Receipt Date: 20130305
  Transmission Date: 20140127
  Serious: Yes (Hospitalization)
  Sender: FDA-Public Use
  Company Number: 163-21880-12030432

PATIENT
  Age: 70 Year
  Sex: Female
  Weight: 74.84 kg

DRUGS (9)
  1. REVLIMID (LENALIDOMIDE) (CAPSULES) [Suspect]
     Indication: MYELODYSPLASTIC SYNDROME
     Dosage: 5 MG, 1 IN 1 D, PO
     Route: 048
     Dates: start: 20111205
  2. ACTOS (PIOGLITAZONE HYDROCHLORIDE) [Concomitant]
  3. FOSINOPRIL [Concomitant]
  4. TERAZOSIN (TERAZOSIN) [Concomitant]
  5. ALPRAZOLAM [Concomitant]
  6. LEVOTHYROXINE [Concomitant]
  7. PROCRIT [Concomitant]
  8. SYNTHROID (LEVOTHYROXINE SODIUM) [Concomitant]
  9. MONOPRIL (FOSINOPRIL SODIUM) [Concomitant]

REACTIONS (2)
  - Diverticulitis [None]
  - Abdominal pain [None]
